FAERS Safety Report 10155581 (Version 4)
Quarter: 2014Q4

REPORT INFORMATION
  Report Type: Report from Study
  Country: JP (occurrence: JP)
  Receive Date: 20140506
  Receipt Date: 20141013
  Transmission Date: 20150528
  Serious: Yes (Hospitalization)
  Sender: FDA-Public Use
  Company Number: JP-NAPPMUNDI-GBR-2014-0018172

PATIENT
  Age: 56 Year
  Sex: Female

DRUGS (16)
  1. OXYCODONE HCL PR TABLET [Suspect]
     Active Substance: OXYCODONE HYDROCHLORIDE
     Dosage: 5 MG, BID
     Route: 048
     Dates: start: 20130905, end: 20130919
  2. TETRAMIDE [Suspect]
     Active Substance: MIANSERIN
     Indication: PAIN
     Route: 048
  3. DEPAS [Concomitant]
     Active Substance: ETIZOLAM
     Indication: PAIN
     Route: 048
  4. SUMILU [Concomitant]
     Active Substance: FELBINAC
     Indication: PAIN
     Route: 062
  5. MYSER                              /01249201/ [Concomitant]
     Indication: RASH
     Route: 062
  6. LAXOBERON [Concomitant]
     Active Substance: SODIUM PICOSULFATE
     Indication: CONSTIPATION
     Dosage: UNK
     Route: 048
     Dates: start: 20140424
  7. CYMBALTA [Suspect]
     Active Substance: DULOXETINE HYDROCHLORIDE
     Indication: PAIN
     Route: 048
  8. OMEPRAZOLE. [Concomitant]
     Active Substance: OMEPRAZOLE
     Indication: DIARRHOEA
     Dosage: UNK
     Route: 048
     Dates: start: 20140423
  9. OXYCODONE HCL PR TABLET [Suspect]
     Active Substance: OXYCODONE HYDROCHLORIDE
     Indication: PAIN
     Dosage: 40 MG, BID
     Route: 048
     Dates: start: 20140410, end: 20140424
  10. KERATINAMIN KOWA CREAM [Concomitant]
     Route: 003
  11. OXYCODONE HCL PR TABLET [Suspect]
     Active Substance: OXYCODONE HYDROCHLORIDE
     Dosage: 20 MG, BID
     Route: 048
     Dates: start: 20131031, end: 20140327
  12. OXYCODONE HCL PR TABLET [Suspect]
     Active Substance: OXYCODONE HYDROCHLORIDE
     Dosage: 10 MG, BID
     Route: 048
     Dates: start: 20130919, end: 20131031
  13. NEUROTROPIN                        /00398601/ [Concomitant]
     Indication: PAIN
     Route: 048
  14. MAGNESIUM OXIDE. [Concomitant]
     Active Substance: MAGNESIUM OXIDE
     Route: 048
  15. OXYCODONE HCL PR TABLET [Suspect]
     Active Substance: OXYCODONE HYDROCHLORIDE
     Dosage: 30 MG, BID
     Route: 048
     Dates: start: 20140327, end: 20140410
  16. MOSAPRIDE CITRATE [Concomitant]
     Active Substance: MOSAPRIDE CITRATE
     Indication: DIARRHOEA
     Dosage: UNK
     Route: 048
     Dates: start: 20140423

REACTIONS (2)
  - Intestinal perforation [Recovered/Resolved]
  - Sepsis [Recovered/Resolved]

NARRATIVE: CASE EVENT DATE: 20140424
